FAERS Safety Report 11731077 (Version 2)
Quarter: 2016Q1

REPORT INFORMATION
  Report Type: Spontaneous
  Country: US (occurrence: US)
  Receive Date: 20151112
  Receipt Date: 20160106
  Transmission Date: 20160525
  Serious: Yes (Death, Other)
  Sender: FDA-Public Use
  Company Number: PHHY2015US133045

PATIENT
  Age: 87 Year
  Sex: Male

DRUGS (1)
  1. VOTRIENT [Suspect]
     Active Substance: PAZOPANIB HYDROCHLORIDE
     Indication: RENAL CANCER
     Dosage: 200 MG, OT
     Route: 065
     Dates: start: 20140919

REACTIONS (9)
  - Feeling abnormal [Recovering/Resolving]
  - Drug ineffective [Unknown]
  - Gastrointestinal haemorrhage [Unknown]
  - Diarrhoea [Recovering/Resolving]
  - Metastases to stomach [Unknown]
  - Malignant neoplasm progression [Unknown]
  - Nonspecific reaction [Recovering/Resolving]
  - Renal cancer [Fatal]
  - Fatigue [Recovering/Resolving]

NARRATIVE: CASE EVENT DATE: 20150715
